FAERS Safety Report 5420739-9 (Version None)
Quarter: 2007Q3

REPORT INFORMATION
  Report Type: 
  Country: None (occurrence: None)
  Receive Date: 20070821
  Receipt Date: 20070814
  Transmission Date: 20080115
  Serious: Yes (Death)
  Sender: FDA-Public Use
  Company Number: IN-ASTRAZENECA-2006AP02122

PATIENT
  Age: 23186 Day
  Sex: Female

DRUGS (4)
  1. FASLODEX [Suspect]
     Indication: BREAST CANCER
     Route: 030
     Dates: start: 20060410, end: 20060410
  2. METFORMIN HCL [Concomitant]
     Indication: DIABETES MELLITUS
     Route: 048
     Dates: start: 20050701, end: 20060311
  3. DIBIZIDE M [Concomitant]
     Indication: DIABETES MELLITUS
     Route: 048
     Dates: start: 20060312
  4. KETANOV [Concomitant]
     Indication: ABDOMINAL PAIN
     Route: 048
     Dates: start: 20060310

REACTIONS (1)
  - HYPERTENSION [None]
